FAERS Safety Report 9647632 (Version 1)
Quarter: 2013Q4

REPORT INFORMATION
  Report Type: Spontaneous
  Country: US (occurrence: US)
  Receive Date: 20131028
  Receipt Date: 20131028
  Transmission Date: 20140711
  Serious: Yes (Other)
  Sender: FDA-Public Use
  Company Number: US-AMGEN-USASP2013074021

PATIENT
  Age: 71 Year
  Sex: Female

DRUGS (16)
  1. PROLIA [Suspect]
     Indication: OSTEOPOROSIS POSTMENOPAUSAL
     Dosage: UNK
     Route: 065
     Dates: start: 201111
  2. PROLIA [Suspect]
     Indication: OSTEOPENIA
  3. CITRACAL                           /00751520/ [Concomitant]
  4. CORTICOSTEROIDS [Concomitant]
     Dosage: UNK
     Dates: start: 2005
  5. RYTHMOL                            /00546301/ [Concomitant]
  6. DILTIAZEM [Concomitant]
  7. LISINOPRIL [Concomitant]
  8. ASPIRIN [Concomitant]
     Dosage: UNK UNK, 3 TIMES/WK
  9. PREDNISONE [Concomitant]
     Dosage: 5 MG, UNK
  10. VITAMIN D                          /00107901/ [Concomitant]
  11. ACIPHEX [Concomitant]
  12. METHOCARBAMOL [Concomitant]
  13. TRAMADOL [Concomitant]
  14. CLONIDINE [Concomitant]
  15. CLARITIN                           /00413701/ [Concomitant]
     Indication: HYPERSENSITIVITY
  16. IG GAMMA [Concomitant]
     Route: 042

REACTIONS (7)
  - Spinal fracture [Unknown]
  - Lower limb fracture [Recovering/Resolving]
  - Upper limb fracture [Unknown]
  - Lactose intolerance [Unknown]
  - Local swelling [Unknown]
  - Arthralgia [Unknown]
  - Blood calcium decreased [Unknown]
